FAERS Safety Report 6439791-7 (Version None)
Quarter: 2009Q4

REPORT INFORMATION
  Report Type: 
  Country: None (occurrence: None)
  Receive Date: 20091113
  Receipt Date: 20091028
  Transmission Date: 20100525
  Serious: Yes (Life-Threatening, Hospitalization)
  Sender: FDA-Public Use
  Company Number: JP-MERCK-0911USA00158

PATIENT
  Age: 83 Year
  Sex: Female
  Weight: 51 kg

DRUGS (1)
  1. DECADRON [Suspect]
     Route: 048
     Dates: start: 20080415, end: 20080714

REACTIONS (3)
  - AORTIC ANEURYSM [None]
  - BLOOD POTASSIUM INCREASED [None]
  - HYPERGLYCAEMIA [None]
